FAERS Safety Report 15044250 (Version 5)
Quarter: 2023Q1

REPORT INFORMATION
  Report Type: Spontaneous
  Country: US (occurrence: US)
  Receive Date: 20180621
  Receipt Date: 20230113
  Transmission Date: 20230418
  Serious: Yes (Other)
  Sender: FDA-Public Use
  Company Number: US-PFIZER INC-2018247071

PATIENT
  Age: 64 Year
  Sex: Female
  Weight: 63.5 kg

DRUGS (2)
  1. EUCRISA [Suspect]
     Active Substance: CRISABOROLE
     Indication: Eczema
     Dosage: APPLY TO HANDS AND FEET TWICE DAILY
     Route: 061
     Dates: start: 201801, end: 201802
  2. EUCRISA [Suspect]
     Active Substance: CRISABOROLE
     Dosage: APPLY EVERY DAY TO TRUNK AND EXTREMITIES
     Route: 061

REACTIONS (5)
  - Neuropathy peripheral [Recovered/Resolved]
  - Product dose omission issue [Recovered/Resolved]
  - Paraesthesia [Recovered/Resolved]
  - Pain in extremity [Recovered/Resolved]
  - Off label use [Unknown]

NARRATIVE: CASE EVENT DATE: 20180201
